FAERS Safety Report 26187243 (Version 1)
Quarter: 2025Q4

REPORT INFORMATION
  Report Type: Spontaneous
  Country: US (occurrence: US)
  Receive Date: 20251222
  Receipt Date: 20251222
  Transmission Date: 20260117
  Serious: Yes (Life-Threatening, Hospitalization, Disabling)
  Sender: BOEHRINGER INGELHEIM
  Company Number: US-BoehringerIngelheim-2025-BI-116385

PATIENT
  Age: 37 Year
  Sex: Male

DRUGS (1)
  1. MELOXICAM [Suspect]
     Active Substance: MELOXICAM
     Indication: Product used for unknown indication
     Dates: start: 20221115, end: 20221119

REACTIONS (4)
  - Dermatitis acneiform [Recovered/Resolved with Sequelae]
  - Rhabdomyolysis [Recovered/Resolved with Sequelae]
  - Immune-mediated myositis [Recovered/Resolved with Sequelae]
  - Dermatomyositis [Recovered/Resolved with Sequelae]

NARRATIVE: CASE EVENT DATE: 20221119
